FAERS Safety Report 11620607 (Version 2)
Quarter: 2015Q4

REPORT INFORMATION
  Report Type: Spontaneous
  Country: JP (occurrence: JP)
  Receive Date: 20151012
  Receipt Date: 20151207
  Transmission Date: 20160304
  Serious: Yes (Death)
  Sender: FDA-Public Use
  Company Number: JP-MYLANLABS-2015M1034432

PATIENT

DRUGS (4)
  1. DIAZEPAM. [Interacting]
     Active Substance: DIAZEPAM
     Indication: PANIC DISORDER
     Route: 048
  2. PAROXETINE [Suspect]
     Active Substance: PAROXETINE\PAROXETINE HYDROCHLORIDE
     Indication: PANIC DISORDER
     Route: 048
  3. DIPHENHYDRAMINE. [Interacting]
     Active Substance: DIPHENHYDRAMINE
     Indication: PANIC DISORDER
     Route: 048
  4. PHENOBARBITAL POWDER 10% ^HOEI^ [Interacting]
     Active Substance: PHENOBARBITAL
     Indication: PANIC DISORDER
     Route: 048

REACTIONS (3)
  - Drug interaction [Fatal]
  - Toxicity to various agents [Fatal]
  - Depressed level of consciousness [Fatal]
